FAERS Safety Report 23924731 (Version 1)
Quarter: 2024Q2

REPORT INFORMATION
  Report Type: Spontaneous
  Country: TR (occurrence: TR)
  Receive Date: 20240531
  Receipt Date: 20240531
  Transmission Date: 20240715
  Serious: Yes (Other)
  Sender: FDA-Public Use
  Company Number: TR-TEVA-VS-3186918

PATIENT
  Sex: Male

DRUGS (3)
  1. MODAFINIL [Suspect]
     Active Substance: MODAFINIL
     Indication: Attention deficit hyperactivity disorder
     Route: 065
  2. CONCERTA [Suspect]
     Active Substance: METHYLPHENIDATE HYDROCHLORIDE
  3. RITALIN [Suspect]
     Active Substance: METHYLPHENIDATE HYDROCHLORIDE

REACTIONS (11)
  - Mental impairment [Unknown]
  - Mental disorder [Unknown]
  - Unresponsive to stimuli [Unknown]
  - Impaired reasoning [Unknown]
  - Personality change [Unknown]
  - Cognitive disorder [Unknown]
  - Behaviour disorder [Unknown]
  - Emotional disorder [Unknown]
  - Poverty of thought content [Unknown]
  - Drug dependence [Unknown]
  - Hallucination, auditory [Unknown]
